FAERS Safety Report 5316667-X (Version None)
Quarter: 2007Q2

REPORT INFORMATION
  Report Type: 
  Country: None (occurrence: None)
  Receive Date: 20070430
  Receipt Date: 20070430
  Transmission Date: 20071010
  Serious: Yes (Hospitalization)
  Sender: FDA-Public Use
  Company Number: None

PATIENT
  Age: 80 Year
  Sex: Male
  Weight: 80 kg

DRUGS (11)
  1. HYDROCORTISONE [Suspect]
     Indication: PROSTATE CANCER
     Dosage: 30MG DAILY PO
     Route: 048
     Dates: start: 20060824, end: 20061216
  2. ARTIFICIAL TEARS POLYVINYL ALCOHOL [Concomitant]
  3. ASPIRIN [Concomitant]
  4. CALCIUM CARBONATE/VITAMIN D [Concomitant]
  5. FERROUS SULFATE TAB [Concomitant]
  6. GABAPENTIN [Concomitant]
  7. KETOCONAZOLE [Concomitant]
  8. LCD 5% IN AQUAPHOR [Concomitant]
  9. LORAZEPAM [Concomitant]
  10. NIACIN [Concomitant]
  11. OLANZAPINE [Concomitant]

REACTIONS (3)
  - AFFECT LABILITY [None]
  - ILL-DEFINED DISORDER [None]
  - NERVOUSNESS [None]
